FAERS Safety Report 14128579 (Version 1)
Quarter: 2017Q4

REPORT INFORMATION
  Report Type: Spontaneous
  Country: US (occurrence: US)
  Receive Date: 20171026
  Receipt Date: 20171026
  Transmission Date: 20180321
  Serious: Yes (Other)
  Sender: FDA-Public Use
  Company Number: None

PATIENT
  Age: 34 Year
  Sex: Male
  Weight: 103.5 kg

DRUGS (1)
  1. DEPAKOTE [Suspect]
     Active Substance: DIVALPROEX SODIUM
     Indication: SEIZURE
     Route: 048

REACTIONS (5)
  - Asthenia [None]
  - Self-injurious ideation [None]
  - Anxiety [None]
  - Depression [None]
  - Tachyphrenia [None]

NARRATIVE: CASE EVENT DATE: 20091001
